FAERS Safety Report 16370992 (Version 1)
Quarter: 2019Q3

REPORT INFORMATION
  Report Type: Spontaneous
  Country: US (occurrence: US)
  Receive Date: 20190529
  Receipt Date: 20190529
  Transmission Date: 20191004
  Serious: Yes (Other)
  Sender: FDA-Public Use
  Company Number: None

PATIENT
  Age: 45 Year
  Sex: Male
  Weight: 108 kg

DRUGS (4)
  1. OZEMPIC [Suspect]
     Active Substance: SEMAGLUTIDE
     Indication: BLOOD GLUCOSE
     Dosage: ?          QUANTITY:1 0.25MG OR 0.5MG;OTHER FREQUENCY:WEEKLY;OTHER ROUTE:SUB Q?
     Dates: end: 20190524
  2. GEODON [Concomitant]
     Active Substance: ZIPRASIDONE HYDROCHLORIDE\ZIPRASIDONE MESYLATE
  3. LIPITOR [Concomitant]
     Active Substance: ATORVASTATIN CALCIUM
  4. LISINOPRIL. [Concomitant]
     Active Substance: LISINOPRIL

REACTIONS (3)
  - Nausea [None]
  - Vomiting [None]
  - Decreased appetite [None]

NARRATIVE: CASE EVENT DATE: 20190529
